FAERS Safety Report 9290817 (Version 1)
Quarter: 2013Q2

REPORT INFORMATION
  Report Type: Spontaneous
  Country: US (occurrence: None)
  Receive Date: 20130513
  Receipt Date: 20130513
  Transmission Date: 20140414
  Serious: Yes (Disabling, Other)
  Sender: FDA-Public Use
  Company Number: 1305-598

PATIENT
  Sex: Female

DRUGS (1)
  1. EYLEA [Suspect]

REACTIONS (2)
  - Eye inflammation [None]
  - Blindness [None]
